FAERS Safety Report 7660989-4 (Version None)
Quarter: 2011Q3

REPORT INFORMATION
  Report Type: 
  Country: None (occurrence: None)
  Receive Date: 20110805
  Receipt Date: 20101006
  Transmission Date: 20111222
  Serious: No
  Sender: FDA-Public Use
  Company Number: US-ABBOTT-10P-163-0677207-00

PATIENT
  Sex: Male
  Weight: 94.432 kg

DRUGS (9)
  1. ASPIRIN [Concomitant]
     Indication: PROPHYLAXIS
     Dates: start: 20100927
  2. METHIMAZOLE [Concomitant]
     Indication: THYROID DISORDER
  3. VIT C [Concomitant]
     Indication: VITAMIN SUPPLEMENTATION
  4. AZOR [Concomitant]
     Indication: PRODUCT USED FOR UNKNOWN INDICATION
  5. PLAVIX [Concomitant]
     Indication: PRODUCT USED FOR UNKNOWN INDICATION
  6. CENTRUM [Concomitant]
     Indication: VITAMIN SUPPLEMENTATION
  7. METOPROLOL TARTRATE [Concomitant]
     Indication: ANGINA PECTORIS
  8. NIASPAN [Suspect]
     Indication: BLOOD CHOLESTEROL INCREASED
     Dates: start: 20100927
  9. FUROSEMIDE [Concomitant]
     Indication: PRODUCT USED FOR UNKNOWN INDICATION

REACTIONS (2)
  - DYSPNOEA EXERTIONAL [None]
  - DYSPNOEA [None]
